FAERS Safety Report 20152203 (Version 2)
Quarter: 2021Q4

REPORT INFORMATION
  Report Type: Spontaneous
  Country: BR (occurrence: BR)
  Receive Date: 20211206
  Receipt Date: 20211217
  Transmission Date: 20220303
  Serious: Yes (Death, Other)
  Sender: FDA-Public Use
  Company Number: BR-CELGENE-BRA-20211200678

PATIENT
  Sex: Male

DRUGS (1)
  1. VIDAZA [Suspect]
     Active Substance: AZACITIDINE
     Indication: Myelodysplastic syndrome
     Route: 065
     Dates: start: 20160601, end: 20200907

REACTIONS (4)
  - Cardiac arrest [Fatal]
  - Skin cancer [Unknown]
  - Cardiac disorder [Unknown]
  - Insomnia [Unknown]
